FAERS Safety Report 6198285-7 (Version None)
Quarter: 2009Q2

REPORT INFORMATION
  Report Type: 
  Country: None (occurrence: None)
  Receive Date: 20090519
  Receipt Date: 20090504
  Transmission Date: 20091009
  Serious: Yes (Hospitalization)
  Sender: FDA-Public Use
  Company Number: 2009PV037663

PATIENT
  Age: 52 Year
  Sex: Female
  Weight: 137.8935 kg

DRUGS (12)
  1. SYMLIN [Suspect]
     Indication: TYPE 2 DIABETES MELLITUS
     Dosage: SC
     Route: 058
     Dates: end: 20090101
  2. SYMLIN [Suspect]
     Indication: TYPE 2 DIABETES MELLITUS
     Dosage: 120 MCG; TID; SC, 60 MCG; TID; SC
     Route: 058
     Dates: start: 20050805, end: 20051117
  3. SYMLIN [Suspect]
     Indication: TYPE 2 DIABETES MELLITUS
     Dosage: 120 MCG; TID; SC, 60 MCG; TID; SC
     Route: 058
     Dates: start: 20051117, end: 20081106
  4. LANTUS [Concomitant]
  5. APIDRA [Concomitant]
  6. ATENOLOL [Concomitant]
  7. KLOR-CON [Concomitant]
  8. LEVOXYL [Concomitant]
  9. RAMIPRIL [Concomitant]
  10. AMLODIPINE [Concomitant]
  11. NEXIUM [Concomitant]
  12. HYDROCHLOROTHIAZIDE [Concomitant]

REACTIONS (1)
  - PANCREATITIS [None]
